FAERS Safety Report 9153417 (Version 1)
Quarter: 2013Q1

REPORT INFORMATION
  Report Type: Spontaneous
  Country: FR (occurrence: FR)
  Receive Date: 20130311
  Receipt Date: 20130311
  Transmission Date: 20140127
  Serious: Yes (Other)
  Sender: FDA-Public Use
  Company Number: FR-JNJFOC-20130300809

PATIENT
  Age: 71 Year
  Sex: Female

DRUGS (7)
  1. XARELTO [Suspect]
     Indication: THROMBOSIS PROPHYLAXIS
     Route: 048
  2. XARELTO [Suspect]
     Indication: KNEE ARTHROPLASTY
     Route: 048
  3. ERYTHROPOIETIN [Concomitant]
     Route: 065
  4. NSAID^S [Concomitant]
     Route: 065
  5. PREVISCAN (FLUINDIONE) [Concomitant]
     Route: 065
  6. RIVOTRIL [Concomitant]
     Route: 065
  7. MORPHINE [Concomitant]
     Route: 065

REACTIONS (4)
  - Deep vein thrombosis [Recovering/Resolving]
  - Pulmonary embolism [Recovering/Resolving]
  - Syncope [Unknown]
  - Drug ineffective [Unknown]
